FAERS Safety Report 4352552-8 (Version None)
Quarter: 2004Q2

REPORT INFORMATION
  Report Type: 
  Country: None (occurrence: None)
  Receive Date: 20040427
  Receipt Date: 20040108
  Transmission Date: 20050107
  Serious: No
  Sender: FDA-Public Use
  Company Number: WAES 0401USA00740

PATIENT
  Age: 50 Year
  Sex: Female
  Weight: 78.9259 kg

DRUGS (12)
  1. EMEND [Suspect]
     Indication: PROPHYLACTIC CHEMOTHERAPY
     Dosage: SEE IMAGE
     Route: 048
     Dates: start: 20031218, end: 20031218
  2. EMEND [Suspect]
     Indication: PROPHYLACTIC CHEMOTHERAPY
     Dosage: SEE IMAGE
     Route: 048
     Dates: start: 20031219, end: 20031220
  3. INJ ADRIAMYCIN [Concomitant]
     Dosage: IV
     Route: 042
     Dates: start: 20031218
  4. INJ ADRIAMYCIN [Concomitant]
     Dosage: IV
     Route: 042
     Dates: start: 20040116
  5. BENICAR [Concomitant]
  6. COUMADIN [Concomitant]
  7. CYTOXAN [Concomitant]
  8. DECADRON [Concomitant]
  9. DECADRON [Concomitant]
  10. VALTREX [Concomitant]
  11. ZOFRAN [Concomitant]
  12. ZOFRAN [Concomitant]

REACTIONS (2)
  - NAUSEA [None]
  - PARAESTHESIA [None]
